FAERS Safety Report 22370996 (Version 1)
Quarter: 2023Q2

REPORT INFORMATION
  Report Type: Spontaneous
  Country: US (occurrence: US)
  Receive Date: 20230526
  Receipt Date: 20230526
  Transmission Date: 20230721
  Serious: Yes (Hospitalization)
  Sender: FDA-Public Use
  Company Number: US-BoehringerIngelheim-2004-BP-01180BP

PATIENT
  Sex: Male

DRUGS (2)
  1. FLOMAX [Suspect]
     Active Substance: TAMSULOSIN HYDROCHLORIDE
     Indication: Benign prostatic hyperplasia
     Dosage: 0.4 MG, QD
     Route: 048
     Dates: start: 2003, end: 2004
  2. VITAMINS [Concomitant]
     Active Substance: VITAMINS
     Dosage: UNK
     Route: 065

REACTIONS (1)
  - Chest pain [Recovered/Resolved]

NARRATIVE: CASE EVENT DATE: 20040101
